FAERS Safety Report 5898005-7 (Version None)
Quarter: 2008Q3

REPORT INFORMATION
  Report Type: 
  Country: None (occurrence: None)
  Receive Date: 20080917
  Receipt Date: 20080513
  Transmission Date: 20090109
  Serious: Yes (Other)
  Sender: FDA-Public Use
  Company Number: PHEH2008US01640

PATIENT
  Sex: Female
  Weight: 65.8 kg

DRUGS (5)
  1. FEMARA [Suspect]
     Indication: BREAST CANCER
     Dosage: 2.5 MG, QD
     Dates: start: 20070619
  2. ACETYLSALICYLIC ACID (ACETYLSALCYLIC ACID) [Concomitant]
  3. PRILOSEC [Concomitant]
  4. TOPROL-XL [Concomitant]
  5. OSCAL 500-D (CALCIUM, COLECALCIFEROL) [Concomitant]

REACTIONS (6)
  - DEPRESSED MOOD [None]
  - HAIR GROWTH ABNORMAL [None]
  - HOT FLUSH [None]
  - INSOMNIA [None]
  - MOOD SWINGS [None]
  - VULVOVAGINAL DRYNESS [None]
